FAERS Safety Report 4898009-7 (Version None)
Quarter: 2006Q1

REPORT INFORMATION
  Report Type: 
  Country: None (occurrence: None)
  Receive Date: 20060201
  Receipt Date: 20060123
  Transmission Date: 20060701
  Serious: Yes (Other)
  Sender: FDA-Public Use
  Company Number: AT-ROCHE-433217

PATIENT
  Age: 38 Year
  Sex: Male
  Weight: 90 kg

DRUGS (2)
  1. PEGASYS [Suspect]
     Route: 065
     Dates: start: 20040823, end: 20050415
  2. COPEGUS [Concomitant]
     Dosage: TAKEN IN THE MORNING AND IN THE EVENING.
     Dates: start: 20040823, end: 20050415

REACTIONS (5)
  - BLINDNESS UNILATERAL [None]
  - GRANULOMA [None]
  - VISUAL ACUITY REDUCED [None]
  - VITREOUS DISORDER [None]
  - VITRITIS [None]
